FAERS Safety Report 7544252-8 (Version None)
Quarter: 2011Q2

REPORT INFORMATION
  Report Type: 
  Country: None (occurrence: None)
  Receive Date: 20110613
  Receipt Date: 20070514
  Transmission Date: 20111010
  Serious: Yes (Other)
  Sender: FDA-Public Use
  Company Number: PHMT2007CA00811

PATIENT
  Sex: Male

DRUGS (2)
  1. SANDOSTATIN LAR [Suspect]
     Indication: GASTROINTESTINAL ANGIODYSPLASIA
     Dosage: 20 MG, UNK
     Route: 030
     Dates: start: 20060306, end: 20070215
  2. SANDOSTATIN LAR [Suspect]

REACTIONS (3)
  - DIZZINESS [None]
  - BLINDNESS [None]
  - XANTHOPSIA [None]
